FAERS Safety Report 5898473-0 (Version None)
Quarter: 2008Q3

REPORT INFORMATION
  Report Type: 
  Country: None (occurrence: None)
  Receive Date: 20080925
  Receipt Date: 20071121
  Transmission Date: 20090109
  Serious: No
  Sender: FDA-Public Use
  Company Number: A0695615A

PATIENT
  Age: 45 Year
  Sex: Female

DRUGS (7)
  1. WELLBUTRIN XL [Suspect]
     Indication: DEPRESSION
     Dosage: 300MG PER DAY
     Route: 048
     Dates: start: 20061101
  2. TOPAMAX [Concomitant]
  3. LORAZEPAM [Concomitant]
  4. ABILIFY [Concomitant]
  5. LAMICTAL [Concomitant]
  6. UNKNOWN MEDICATION [Concomitant]
  7. SIMVASTATIN [Concomitant]

REACTIONS (1)
  - HAIR GROWTH ABNORMAL [None]
